FAERS Safety Report 6668055-1 (Version None)
Quarter: 2010Q2

REPORT INFORMATION
  Report Type: 
  Country: None (occurrence: None)
  Receive Date: 20100405
  Receipt Date: 20100331
  Transmission Date: 20101027
  Serious: Yes (Death, Hospitalization)
  Sender: FDA-Public Use
  Company Number: BR-ABBOTT-10P-020-0635729-00

PATIENT
  Sex: Female

DRUGS (2)
  1. HUMIRA [Suspect]
     Indication: RHEUMATOID ARTHRITIS
     Route: 058
  2. UNKNOWN DRUG THERAPY [Concomitant]
     Indication: RHEUMATOID ARTHRITIS
     Route: 048

REACTIONS (6)
  - GAIT DISTURBANCE [None]
  - JOINT STABILISATION [None]
  - MOBILITY DECREASED [None]
  - MULTI-ORGAN FAILURE [None]
  - PAIN [None]
  - WEIGHT DECREASED [None]
